FAERS Safety Report 12326807 (Version 3)
Quarter: 2022Q1

REPORT INFORMATION
  Report Type: Spontaneous
  Country: US (occurrence: US)
  Receive Date: 20160503
  Receipt Date: 20220307
  Transmission Date: 20220423
  Serious: No
  Sender: FDA-Public Use
  Company Number: US-PFIZER INC-2016196355

PATIENT
  Age: 67 Year
  Sex: Female

DRUGS (14)
  1. TETRACYCLINE HYDROCHLORIDE [Suspect]
     Active Substance: TETRACYCLINE HYDROCHLORIDE
     Dosage: UNK
  2. CLINDAMYCIN PHOSPHATE [Suspect]
     Active Substance: CLINDAMYCIN PHOSPHATE
     Dosage: UNK
     Route: 042
  3. CIPROFLOXACIN [Suspect]
     Active Substance: CIPROFLOXACIN
     Dosage: UNK
  4. OXYCODONE [Suspect]
     Active Substance: OXYCODONE
     Dosage: UNK
  5. VICODIN [Suspect]
     Active Substance: ACETAMINOPHEN\HYDROCODONE BITARTRATE
     Dosage: UNK
  6. KEFLEX [Suspect]
     Active Substance: CEPHALEXIN
     Dosage: UNK
  7. CECLOR [Suspect]
     Active Substance: CEFACLOR
     Dosage: UNK
  8. OXYCONTIN [Suspect]
     Active Substance: OXYCODONE HYDROCHLORIDE
     Dosage: UNK
  9. TALWIN NX [Suspect]
     Active Substance: NALOXONE HYDROCHLORIDE\PENTAZOCINE HYDROCHLORIDE
     Dosage: UNK
  10. CODEINE [Suspect]
     Active Substance: CODEINE
     Dosage: UNK
  11. TRAMADOL [Suspect]
     Active Substance: TRAMADOL
     Dosage: UNK
  12. PERCOCET [Suspect]
     Active Substance: ACETAMINOPHEN\OXYCODONE HYDROCHLORIDE
     Dosage: UNK
  13. PERCODAN [Suspect]
     Active Substance: ASPIRIN\OXYCODONE HYDROCHLORIDE
     Dosage: UNK
  14. INFLUENZA VIRUS VACCINE [Suspect]
     Active Substance: INFLUENZA VIRUS VACCINE
     Dosage: UNK

REACTIONS (10)
  - Drug hypersensitivity [Unknown]
  - Dyspnoea [Unknown]
  - Chest pain [Unknown]
  - Throat tightness [Unknown]
  - Swollen tongue [Unknown]
  - Urticaria [Unknown]
  - Swelling of eyelid [Unknown]
  - Lip swelling [Unknown]
  - Chest discomfort [Unknown]
  - Pruritus [Unknown]
